FAERS Safety Report 18553889 (Version 4)
Quarter: 2021Q4

REPORT INFORMATION
  Report Type: Spontaneous
  Country: US (occurrence: US)
  Receive Date: 20201127
  Receipt Date: 20211014
  Transmission Date: 20220303
  Serious: Yes (Other)
  Sender: FDA-Public Use
  Company Number: US-GILEAD-2020-0505723

PATIENT
  Age: 28 Year
  Sex: Female
  Weight: 114.29 kg

DRUGS (20)
  1. ATRIPLA [Suspect]
     Active Substance: EFAVIRENZ\EMTRICITABINE\TENOFOVIR DISOPROXIL FUMARATE
     Indication: HIV infection
     Dosage: UNK
     Route: 048
     Dates: start: 2006, end: 200909
  2. ATRIPLA [Suspect]
     Active Substance: EFAVIRENZ\EMTRICITABINE\TENOFOVIR DISOPROXIL FUMARATE
     Dosage: UNK
     Route: 048
     Dates: start: 2006, end: 2019
  3. TRUVADA [Suspect]
     Active Substance: EMTRICITABINE\TENOFOVIR DISOPROXIL FUMARATE
     Indication: HIV infection
     Dosage: UNK
     Route: 048
     Dates: start: 2018, end: 2019
  4. VIREAD [Suspect]
     Active Substance: TENOFOVIR DISOPROXIL FUMARATE
     Indication: HIV infection
     Dosage: UNK
     Route: 048
     Dates: start: 2004, end: 20180213
  5. VIREAD [Suspect]
     Active Substance: TENOFOVIR DISOPROXIL FUMARATE
     Dosage: UNK
     Route: 048
     Dates: start: 2017, end: 2018
  6. TYLENOL [Concomitant]
     Active Substance: ACETAMINOPHEN
  7. IBUPROFEN [Concomitant]
     Active Substance: IBUPROFEN
  8. NAPROXEN [Concomitant]
     Active Substance: NAPROXEN
  9. DICLOFENAC [Concomitant]
     Active Substance: DICLOFENAC
  10. COMBIVIR [Concomitant]
     Active Substance: LAMIVUDINE\ZIDOVUDINE
  11. EDURANT [Concomitant]
     Active Substance: RILPIVIRINE HYDROCHLORIDE
  12. EPIVIR [Concomitant]
     Active Substance: LAMIVUDINE
  13. EPZICOM [Concomitant]
     Active Substance: ABACAVIR SULFATE\LAMIVUDINE
  14. EVOTAZ [Concomitant]
     Active Substance: ATAZANAVIR SULFATE\COBICISTAT
  15. KALETRA [Concomitant]
     Active Substance: LOPINAVIR\RITONAVIR
  16. REYATAZ [Concomitant]
     Active Substance: ATAZANAVIR SULFATE
  17. TIVICAY [Concomitant]
     Active Substance: DOLUTEGRAVIR SODIUM
  18. TRIUMEQ [Concomitant]
     Active Substance: ABACAVIR SULFATE\DOLUTEGRAVIR SODIUM\LAMIVUDINE
  19. EMTRIVA [Concomitant]
     Active Substance: EMTRICITABINE
  20. ATORVASTATIN [Concomitant]
     Active Substance: ATORVASTATIN

REACTIONS (11)
  - End stage renal disease [Not Recovered/Not Resolved]
  - Chronic kidney disease [Unknown]
  - Rib fracture [Not Recovered/Not Resolved]
  - Renal failure [Unknown]
  - Acute kidney injury [Unknown]
  - Protein urine present [Unknown]
  - Protein total abnormal [Not Recovered/Not Resolved]
  - Anaemia [Not Recovered/Not Resolved]
  - Blood creatinine increased [Unknown]
  - Weight increased [Unknown]
  - Mobility decreased [Not Recovered/Not Resolved]

NARRATIVE: CASE EVENT DATE: 20100105
